FAERS Safety Report 4293875-0 (Version None)
Quarter: 2004Q1

REPORT INFORMATION
  Report Type: 
  Country: None (occurrence: None)
  Receive Date: 20040211
  Receipt Date: 20040130
  Transmission Date: 20041129
  Serious: Yes (Hospitalization)
  Sender: FDA-Public Use
  Company Number: 2004006647

PATIENT
  Age: 22 Year
  Sex: Female

DRUGS (1)
  1. ZITHROMAX [Suspect]
     Indication: PERIODONTITIS
     Dosage: 500 MG, ORAL
     Route: 048
     Dates: start: 20040106

REACTIONS (2)
  - GENERAL PHYSICAL HEALTH DETERIORATION [None]
  - PERICARDIAL EFFUSION [None]
